FAERS Safety Report 11699434 (Version 2)
Quarter: 2015Q4

REPORT INFORMATION
  Report Type: Report from Study
  Country: BR (occurrence: BR)
  Receive Date: 20151104
  Receipt Date: 20151210
  Transmission Date: 20160304
  Serious: Yes (Disabling)
  Sender: FDA-Public Use
  Company Number: PHHY2015BR143689

PATIENT
  Sex: Male
  Weight: 65 kg

DRUGS (1)
  1. EXELON PATCH [Suspect]
     Active Substance: RIVASTIGMINE
     Indication: PRODUCT USED FOR UNKNOWN INDICATION
     Dosage: UNK, QD
     Route: 062
     Dates: start: 201507

REACTIONS (6)
  - Fall [Recovering/Resolving]
  - Head injury [Recovering/Resolving]
  - Headache [Recovering/Resolving]
  - Product adhesion issue [Recovering/Resolving]
  - Syncope [Recovering/Resolving]
  - Application site erythema [Recovering/Resolving]
